FAERS Safety Report 10412554 (Version 1)
Quarter: 2014Q2

REPORT INFORMATION
  Report Type: Spontaneous
  Country: US (occurrence: None)
  Receive Date: 20140604
  Receipt Date: 20140604
  Transmission Date: 20141212
  Serious: No
  Sender: FDA-Public Use
  Company Number: 163-POMAL-14033303

PATIENT
  Age: 60 Year
  Sex: Male

DRUGS (3)
  1. POMALYST (POMALIDOMIDE) (CAPSULES) [Suspect]
     Dosage: 3 MG 21 IN 21 D
     Route: 048
     Dates: start: 20131204, end: 201403
  2. MULTIVITAMINS (MULTIVITAMINS) [Concomitant]
  3. DEXAMETHASONE (DEXAMETHASONE) [Concomitant]

REACTIONS (1)
  - Plasma cell myeloma [None]
